FAERS Safety Report 9283629 (Version 2)
Quarter: 2013Q2

REPORT INFORMATION
  Report Type: Spontaneous
  Country: CA (occurrence: CA)
  Receive Date: 20130510
  Receipt Date: 20130515
  Transmission Date: 20140414
  Serious: Yes (Other)
  Sender: FDA-Public Use
  Company Number: PHHY2013CA044518

PATIENT
  Age: 75 Year
  Sex: Male

DRUGS (3)
  1. CLARITHROMYCIN SANDOZ [Suspect]
     Indication: ACUTE SINUSITIS
     Dosage: 500 MG, BID
     Dates: start: 20130415, end: 20130417
  2. HUMALOG [Interacting]
     Indication: TYPE 1 DIABETES MELLITUS
  3. LEVEMIR [Interacting]
     Indication: TYPE 1 DIABETES MELLITUS

REACTIONS (3)
  - Muscle spasticity [Recovered/Resolved]
  - Hypoglycaemia [Recovered/Resolved]
  - Drug interaction [Recovered/Resolved]
